FAERS Safety Report 15659835 (Version 1)
Quarter: 2018Q4

REPORT INFORMATION
  Report Type: Spontaneous
  Country: FR (occurrence: FR)
  Receive Date: 20181127
  Receipt Date: 20181127
  Transmission Date: 20190205
  Serious: Yes (Death, Other)
  Sender: FDA-Public Use
  Company Number: FR-AMERIGEN PHARMACEUTICALS, INC-2018AMG000027

PATIENT

DRUGS (2)
  1. TEMOZOLOMIDE UNKNOWN [Suspect]
     Active Substance: TEMOZOLOMIDE
     Dosage: UNK
     Route: 065
  2. TEMOZOLOMIDE UNKNOWN [Suspect]
     Active Substance: TEMOZOLOMIDE
     Indication: MALIGNANT GLIOMA
     Dosage: 250 MG, UNK
     Route: 065

REACTIONS (2)
  - Disease progression [Fatal]
  - Lymphopenia [Not Recovered/Not Resolved]
